FAERS Safety Report 7833781-5 (Version None)
Quarter: 2011Q4

REPORT INFORMATION
  Report Type: 
  Country: None (occurrence: None)
  Receive Date: 20111024
  Receipt Date: 20111014
  Transmission Date: 20120403
  Serious: Yes (Death)
  Sender: FDA-Public Use
  Company Number: JP-ROCHE-1002926

PATIENT
  Age: 54 Year
  Sex: Female

DRUGS (6)
  1. GEMCITABINE HYDROCHLORIDE [Concomitant]
     Indication: BREAST CANCER METASTATIC
     Dosage: DOSAGE IS UNCERTAIN.
     Route: 041
  2. DOCETAXEL [Concomitant]
     Indication: BREAST CANCER METASTATIC
     Dosage: DOSAGE IS UNCERTAIN.
     Route: 041
  3. XELODA [Concomitant]
     Indication: BREAST CANCER METASTATIC
     Dosage: DOSAGE IS UNCERTAIN.
     Route: 048
  4. HERCEPTIN [Suspect]
     Indication: BREAST CANCER METASTATIC
     Dosage: DOSAGE IS UNCERTAIN.
     Route: 041
  5. LAPATINIB TOSILATE [Concomitant]
     Indication: BREAST CANCER METASTATIC
     Dosage: DOSAGE IS UNCERTAIN.
     Route: 048
  6. PACLITAXEL [Concomitant]
     Indication: BREAST CANCER METASTATIC
     Dosage: DOSAGE IS UNCERTAIN.
     Route: 041

REACTIONS (2)
  - RENAL DISORDER [None]
  - LIVER DISORDER [None]
